FAERS Safety Report 13509942 (Version 1)
Quarter: 2017Q2

REPORT INFORMATION
  Report Type: Spontaneous
  Country: US (occurrence: US)
  Receive Date: 20170503
  Receipt Date: 20170503
  Transmission Date: 20170830
  Serious: No
  Sender: FDA-Public Use
  Company Number: US-SA-2017SA056099

PATIENT
  Sex: Female

DRUGS (14)
  1. ALIROCUMAB PREFILLED PEN [Concomitant]
     Active Substance: ALIROCUMAB
     Indication: HYPERLIPIDAEMIA
     Dates: start: 20160729
  2. NITROFUR MAC [Concomitant]
     Active Substance: NITROFURANTOIN
  3. DIFLORASONE [Concomitant]
     Active Substance: DIFLORASONE DIACETATE
     Dosage: STRENGTH: 0.05%
  4. ADVAIR DISKUS [Concomitant]
     Active Substance: FLUTICASONE PROPIONATE\SALMETEROL XINAFOATE
     Dosage: 100/50
  5. ATENOLOL. [Concomitant]
     Active Substance: ATENOLOL
  6. DIAZEPAM. [Concomitant]
     Active Substance: DIAZEPAM
  7. CHANTIX [Concomitant]
     Active Substance: VARENICLINE TARTRATE
     Dosage: STRENGTH: 1MG
  8. CHANTIX [Concomitant]
     Active Substance: VARENICLINE TARTRATE
     Dosage: 0.5+ 1MG
  9. CRESTOR [Concomitant]
     Active Substance: ROSUVASTATIN CALCIUM
  10. FLUCONAZOLE. [Concomitant]
     Active Substance: FLUCONAZOLE
  11. OMEPRAZOLE. [Concomitant]
     Active Substance: OMEPRAZOLE
  12. VALACICLOVIR [Concomitant]
     Active Substance: VALACYCLOVIR HYDROCHLORIDE
  13. PRALUENT [Suspect]
     Active Substance: ALIROCUMAB
     Indication: HYPERLIPIDAEMIA
     Route: 058
     Dates: start: 20160729
  14. SPIRIVA [Concomitant]
     Active Substance: TIOTROPIUM BROMIDE MONOHYDRATE
     Dosage: VIA HANDIHALER

REACTIONS (1)
  - Bronchitis [Unknown]
